FAERS Safety Report 12309893 (Version 1)
Quarter: 2016Q2

REPORT INFORMATION
  Report Type: Report from Study
  Country: IN (occurrence: IN)
  Receive Date: 20160427
  Receipt Date: 20160427
  Transmission Date: 20160815
  Serious: Yes (Other)
  Sender: FDA-Public Use
  Company Number: IN-ROCHE-1748355

PATIENT
  Age: 28 Year
  Sex: Female

DRUGS (3)
  1. COPEGUS [Suspect]
     Active Substance: RIBAVIRIN
     Indication: HEPATITIS C
     Dosage: 5 ORAL TABLETS DAILY
     Route: 048
     Dates: start: 20150824
  2. SOFOSBUVIR [Concomitant]
     Active Substance: SOFOSBUVIR
     Route: 065
  3. PEG-INTERFERON ALFA 2A [Suspect]
     Active Substance: PEGINTERFERON ALFA-2A
     Indication: HEPATITIS C
     Dosage: 180 MCG SUBCUTANEOUSLY ONCE WEEKLY
     Route: 058
     Dates: start: 20150824

REACTIONS (3)
  - Platelet count decreased [Recovered/Resolved]
  - Asthenia [Recovered/Resolved]
  - Full blood count decreased [Recovered/Resolved]
